FAERS Safety Report 4765312-0 (Version None)
Quarter: 2005Q3

REPORT INFORMATION
  Report Type: 
  Country: None (occurrence: None)
  Receive Date: 20050909
  Receipt Date: 20050318
  Transmission Date: 20060218
  Serious: Yes (Death, Hospitalization, Other)
  Sender: FDA-Public Use
  Company Number: US-MERCK-0503USA03390

PATIENT
  Age: 41 Year
  Sex: Male
  Weight: 132 kg

DRUGS (23)
  1. VIOXX [Suspect]
     Indication: PAIN MANAGEMENT
     Route: 048
     Dates: start: 20010327, end: 20030310
  2. PREVACID [Concomitant]
     Indication: DYSPEPSIA
     Route: 065
     Dates: start: 20010401
  3. PREVACID [Concomitant]
     Indication: GASTROOESOPHAGEAL REFLUX DISEASE
     Route: 065
     Dates: start: 20010401
  4. NEURONTIN [Concomitant]
     Indication: ANGINA PECTORIS
     Route: 065
     Dates: start: 20010601
  5. HYDROCODONE BITARTRATE + ACETAMINOPHEN [Concomitant]
     Route: 065
     Dates: start: 20011127, end: 20030310
  6. EFFEXOR [Concomitant]
     Route: 065
  7. CARDURA [Concomitant]
     Route: 065
  8. SKELAXIN [Concomitant]
     Route: 065
     Dates: start: 20011001, end: 20030310
  9. AMOXICILLIN [Concomitant]
     Route: 065
  10. CEPHALEXIN [Concomitant]
     Route: 065
  11. PHISOHEX [Concomitant]
     Route: 065
  12. ALLEGRA-D [Concomitant]
     Route: 065
  13. BETA-VAL [Concomitant]
     Route: 065
  14. ZYRTEC [Concomitant]
     Route: 065
  15. CLONAZEPAM [Concomitant]
     Route: 065
  16. MINOCYCLINE [Concomitant]
     Route: 065
  17. RHINOCORT [Concomitant]
     Route: 065
  18. LACTULOSE [Concomitant]
     Route: 065
  19. NASACORT [Concomitant]
     Route: 065
  20. ALBUTEROL [Concomitant]
     Route: 065
  21. ASPIRIN [Concomitant]
     Route: 065
  22. VICODIN [Concomitant]
     Route: 065
  23. ZYPREXA [Concomitant]
     Route: 065

REACTIONS (7)
  - BACK PAIN [None]
  - CONSTIPATION [None]
  - GASTROOESOPHAGEAL REFLUX DISEASE [None]
  - HYPERTENSIVE HEART DISEASE [None]
  - LOSS OF CONSCIOUSNESS [None]
  - MYOCARDIAL INFARCTION [None]
  - PULMONARY EMBOLISM [None]
